FAERS Safety Report 7960938-5 (Version None)
Quarter: 2011Q4

REPORT INFORMATION
  Report Type: 
  Country: None (occurrence: None)
  Receive Date: 20111121
  Receipt Date: 20111013
  Transmission Date: 20120403
  Serious: No
  Sender: FDA-Public Use
  Company Number: 1000024685

PATIENT
  Age: 67 Year
  Sex: Female

DRUGS (6)
  1. VIIBRYD [Suspect]
     Indication: DEPRESSION
     Dosage: SEE IMAGE
     Route: 048
     Dates: start: 20110101, end: 20110101
  2. VIIBRYD [Suspect]
     Indication: DEPRESSION
     Dosage: SEE IMAGE
     Route: 048
     Dates: start: 20110101, end: 20111007
  3. VIIBRYD [Suspect]
     Indication: DEPRESSION
     Dosage: SEE IMAGE
     Route: 048
     Dates: start: 20111008
  4. VIIBRYD [Suspect]
     Indication: DEPRESSION
     Dosage: SEE IMAGE
     Route: 048
     Dates: start: 20110901, end: 20110101
  5. KLONOPIN [Concomitant]
  6. LAMICTAL [Concomitant]

REACTIONS (8)
  - VISION BLURRED [None]
  - DRY MOUTH [None]
  - NAUSEA [None]
  - HEART RATE INCREASED [None]
  - DIZZINESS [None]
  - INSOMNIA [None]
  - VOMITING [None]
  - DIARRHOEA [None]
